FAERS Safety Report 17749698 (Version 1)
Quarter: 2020Q2

REPORT INFORMATION
  Report Type: Spontaneous
  Country: US (occurrence: US)
  Receive Date: 20200505
  Receipt Date: 20200505
  Transmission Date: 20200714
  Serious: Yes (Death)
  Sender: FDA-Public Use
  Company Number: None

PATIENT
  Age: 64 Year
  Sex: Female

DRUGS (7)
  1. CAPECITABINE 500MG TAB [Suspect]
     Active Substance: CAPECITABINE
     Indication: CARCINOID TUMOUR OF THE PANCREAS
     Route: 048
     Dates: start: 20181102, end: 20200229
  2. NEUPOGEN [Concomitant]
     Active Substance: FILGRASTIM
  3. CREON [Concomitant]
     Active Substance: PANCRELIPASE AMYLASE\PANCRELIPASE LIPASE\PANCRELIPASE PROTEASE
  4. ELIQUIS [Concomitant]
     Active Substance: APIXABAN
  5. OXYCODONE [Concomitant]
     Active Substance: OXYCODONE
  6. MULTI-VIT/MINERALS [Concomitant]
  7. SYNTHROID [Concomitant]
     Active Substance: LEVOTHYROXINE SODIUM

REACTIONS (1)
  - Death [None]

NARRATIVE: CASE EVENT DATE: 20200229
